FAERS Safety Report 4663649-7 (Version None)
Quarter: 2005Q2

REPORT INFORMATION
  Report Type: 
  Country: None (occurrence: None)
  Receive Date: 20050517
  Receipt Date: 20050511
  Transmission Date: 20051028
  Serious: Yes (Other)
  Sender: FDA-Public Use
  Company Number: PHBS2005FI06751

PATIENT

DRUGS (1)
  1. LEPONEX [Suspect]
     Route: 048
     Dates: start: 20050401

REACTIONS (2)
  - BLOOD PRESSURE INCREASED [None]
  - BUNDLE BRANCH BLOCK LEFT [None]
